FAERS Safety Report 25354942 (Version 1)
Quarter: 2025Q2

REPORT INFORMATION
  Report Type: Spontaneous
  Country: GB (occurrence: GB)
  Receive Date: 20250524
  Receipt Date: 20250524
  Transmission Date: 20250717
  Serious: Yes (Other)
  Sender: AUROBINDO
  Company Number: GB-MHRA-MED-202505101732041580-YTMDK

PATIENT
  Age: 33 Year
  Sex: Female

DRUGS (1)
  1. CLARITHROMYCIN [Suspect]
     Active Substance: CLARITHROMYCIN
     Indication: Infection
     Dosage: 500 MILLIGRAM, TWO TIMES A DAY (500MG EVERY 12 HOURS)
     Route: 065
     Dates: start: 20250507

REACTIONS (2)
  - Heart rate decreased [Not Recovered/Not Resolved]
  - Maternal exposure during breast feeding [Unknown]

NARRATIVE: CASE EVENT DATE: 20250509
